FAERS Safety Report 6622054-4 (Version None)
Quarter: 2010Q1

REPORT INFORMATION
  Report Type: 
  Country: None (occurrence: None)
  Receive Date: 20100223
  Receipt Date: 20091023
  Transmission Date: 20100710
  Serious: No
  Sender: FDA-Public Use
  Company Number: 8053685

PATIENT
  Sex: Male
  Weight: 79.5 kg

DRUGS (2)
  1. CERTOLIZUMAB PEGOL (UCB, INC) [Suspect]
     Indication: COLITIS ULCERATIVE
     Dosage: (SUBCUTANEOUS)
     Route: 058
     Dates: start: 20091015
  2. PREDNISONE [Concomitant]

REACTIONS (2)
  - INJECTION SITE REACTION [None]
  - SYNCOPE [None]
